FAERS Safety Report 20188478 (Version 1)
Quarter: 2021Q4

REPORT INFORMATION
  Report Type: Spontaneous
  Country: US (occurrence: US)
  Receive Date: 20211215
  Receipt Date: 20211215
  Transmission Date: 20220303
  Serious: Yes (Other)
  Sender: FDA-Public Use
  Company Number: US-PURDUE-USA-2020-0273558

PATIENT
  Sex: Male

DRUGS (2)
  1. HYSINGLA ER [Suspect]
     Active Substance: HYDROCODONE BITARTRATE
     Indication: Ankle fracture
     Dosage: UNKNOWN
     Route: 048
  2. HYDROCODONE BITARTRATE [Suspect]
     Active Substance: HYDROCODONE BITARTRATE
     Indication: Ankle fracture
     Dosage: UNKNOWN
     Route: 065

REACTIONS (6)
  - Drug dependence [Unknown]
  - Cardiac disorder [Unknown]
  - Disturbance in attention [Unknown]
  - Sluggishness [Unknown]
  - Thinking abnormal [Unknown]
  - Somnolence [Unknown]
